FAERS Safety Report 14444976 (Version 3)
Quarter: 2018Q2

REPORT INFORMATION
  Report Type: Spontaneous
  Country: US (occurrence: US)
  Receive Date: 20180126
  Receipt Date: 20180523
  Transmission Date: 20180711
  Serious: No
  Sender: FDA-Public Use
  Company Number: US-PFIZER INC-2018032476

PATIENT
  Sex: Female

DRUGS (3)
  1. LYRICA [Suspect]
     Active Substance: PREGABALIN
     Dosage: 300 MG, UNK
  2. LYRICA [Suspect]
     Active Substance: PREGABALIN
     Dosage: 200 MG, DAILY
  3. LYRICA [Suspect]
     Active Substance: PREGABALIN
     Dosage: 50 MG, UNK

REACTIONS (7)
  - Memory impairment [Not Recovered/Not Resolved]
  - Fatigue [Unknown]
  - Therapeutic response unexpected [Unknown]
  - Somnolence [Unknown]
  - Intentional product use issue [Unknown]
  - Sluggishness [Unknown]
  - Condition aggravated [Unknown]
